FAERS Safety Report 10094750 (Version 1)
Quarter: 2014Q2

REPORT INFORMATION
  Report Type: Spontaneous
  Country: US (occurrence: US)
  Receive Date: 20140422
  Receipt Date: 20140422
  Transmission Date: 20141212
  Serious: No
  Sender: FDA-Public Use
  Company Number: US-PFIZER INC-2014108679

PATIENT
  Age: 59 Year
  Sex: Female
  Weight: 68.03 kg

DRUGS (3)
  1. ADVIL [Suspect]
     Indication: BACK PAIN
     Dosage: UNK
     Route: 048
     Dates: start: 201404, end: 201404
  2. ADVIL PM [Suspect]
     Indication: INSOMNIA
     Dosage: UNK, AT NIGHT
     Route: 048
     Dates: start: 20140413, end: 201404
  3. ADVIL PM [Suspect]
     Indication: PAIN

REACTIONS (6)
  - Drug effect incomplete [Unknown]
  - Insomnia [Unknown]
  - Dyspnoea [Unknown]
  - Drug ineffective [Unknown]
  - Paradoxical drug reaction [Unknown]
  - Fatigue [Unknown]
